FAERS Safety Report 14707055 (Version 1)
Quarter: 2018Q2

REPORT INFORMATION
  Report Type: Spontaneous
  Country: FR (occurrence: FR)
  Receive Date: 20180403
  Receipt Date: 20180403
  Transmission Date: 20180711
  Serious: Yes (Other)
  Sender: FDA-Public Use
  Company Number: FR-ABBVIE-18K-056-2306416-00

PATIENT
  Age: 47 Year
  Sex: Female
  Weight: 57 kg

DRUGS (1)
  1. HUMIRA [Suspect]
     Active Substance: ADALIMUMAB
     Indication: CROHN^S DISEASE
     Route: 058
     Dates: start: 201608

REACTIONS (3)
  - Skin exfoliation [Not Recovered/Not Resolved]
  - Rash pustular [Not Recovered/Not Resolved]
  - Vulval disorder [Not Recovered/Not Resolved]

NARRATIVE: CASE EVENT DATE: 201801
